FAERS Safety Report 22087259 (Version 1)
Quarter: 2023Q1

REPORT INFORMATION
  Report Type: Spontaneous
  Country: US (occurrence: US)
  Receive Date: 20230313
  Receipt Date: 20230313
  Transmission Date: 20230417
  Serious: No
  Sender: FDA-Public Use
  Company Number: US-drreddys-SPO/USA/23/0160123

PATIENT
  Age: 27 Year
  Sex: Female

DRUGS (3)
  1. ACCUTANE [Suspect]
     Active Substance: ISOTRETINOIN
     Indication: Product used for unknown indication
  2. CLARAVIS [Suspect]
     Active Substance: ISOTRETINOIN
     Indication: Product used for unknown indication
     Dosage: RMA DATE: 30 SEPTEMBER 2022, 12:02:18 PM, 15 JULY 2022, 10:27:35 AM, 23 AUGUST 2022, 12:39:45 PM
  3. ISOTRETINOIN [Suspect]
     Active Substance: ISOTRETINOIN
     Indication: Product used for unknown indication

REACTIONS (1)
  - Dry skin [Unknown]
